FAERS Safety Report 8444797-2 (Version None)
Quarter: 2012Q2

REPORT INFORMATION
  Report Type: 
  Country: None (occurrence: None)
  Receive Date: 20120323
  Receipt Date: 20111103
  Transmission Date: 20120825
  Serious: Yes (Disabling)
  Sender: FDA-Public Use
  Company Number: 163-21880-11082181

PATIENT
  Age: 82 Year
  Sex: Female

DRUGS (4)
  1. TPN ELECTROLYTES IN PLASTIC CONTAINER [Suspect]
     Indication: PRODUCT USED FOR UNKNOWN INDICATION
     Dosage: PO
     Route: 048
  2. ENSURE (ENSURE)(UNKNOWN) [Concomitant]
  3. REVLIMID [Suspect]
     Indication: TONGUE NEOPLASM MALIGNANT STAGE UNSPECIFIED
     Dosage: 25 MG,1 IN 1 D, PO, 20 MG, DAILY, PO
     Route: 048
     Dates: start: 20110823
  4. REVLIMID [Suspect]
     Indication: TONGUE NEOPLASM MALIGNANT STAGE UNSPECIFIED
     Dosage: 25 MG,1 IN 1 D, PO, 20 MG, DAILY, PO
     Route: 048
     Dates: start: 20110707

REACTIONS (1)
  - DIARRHOEA [None]
